FAERS Safety Report 6738796-6 (Version None)
Quarter: 2010Q2

REPORT INFORMATION
  Report Type: 
  Country: None (occurrence: None)
  Receive Date: 20100524
  Receipt Date: 20100511
  Transmission Date: 20101027
  Serious: Yes (Death)
  Sender: FDA-Public Use
  Company Number: JP-WATSON-2010-06661

PATIENT
  Age: 72 Year
  Sex: Male

DRUGS (1)
  1. PREDNISOLONE [Suspect]
     Indication: AUTOIMMUNE HEPATITIS
     Dosage: 50 MG, UNK
     Route: 042
     Dates: start: 20080621

REACTIONS (2)
  - ASPERGILLOSIS [None]
  - THROMBOCYTOPENIA [None]
